FAERS Safety Report 11918896 (Version 1)
Quarter: 2016Q1

REPORT INFORMATION
  Report Type: Spontaneous
  Country: US (occurrence: None)
  Receive Date: 20160114
  Receipt Date: 20160114
  Transmission Date: 20160526
  Serious: Yes (Hospitalization, Other)
  Sender: FDA-Public Use
  Company Number: None

PATIENT
  Age: 79 Year
  Sex: Male
  Weight: 83.92 kg

DRUGS (14)
  1. RED YEAST RICE [Concomitant]
     Active Substance: DIETARY SUPPLEMENT
  2. UBIQUINOL [Concomitant]
     Active Substance: UBIQUINOL
  3. VITAMIN D3 [Concomitant]
     Active Substance: CHOLECALCIFEROL
  4. ZINC [Concomitant]
     Active Substance: ZINC\ZINC CHLORIDE
  5. NIACIN. [Concomitant]
     Active Substance: NIACIN
  6. VALSARTAN 320MG/HCT 12.5 [Concomitant]
  7. VIT E COMPLEX [Concomitant]
  8. FOLIC ACID. [Concomitant]
     Active Substance: FOLIC ACID
  9. SELENIUIM [Concomitant]
  10. ASA [Concomitant]
     Active Substance: ASPIRIN
  11. ALLOPURINOL. [Concomitant]
     Active Substance: ALLOPURINOL
  12. VITAMIN C [Concomitant]
     Active Substance: ASCORBIC ACID
  13. MAGNESIUM [Concomitant]
     Active Substance: MAGNESIUM
  14. INDOMETHACINE 50MG 3/DAY [Suspect]
     Active Substance: INDOMETHACIN
     Indication: GOUT
     Route: 048
     Dates: start: 20150711, end: 20150724

REACTIONS (5)
  - Dysarthria [None]
  - Cerebrovascular accident [None]
  - Transient ischaemic attack [None]
  - Headache [None]
  - Dizziness [None]

NARRATIVE: CASE EVENT DATE: 20151028
